FAERS Safety Report 20364333 (Version 1)
Quarter: 2022Q1

REPORT INFORMATION
  Report Type: Spontaneous
  Country: US (occurrence: None)
  Receive Date: 20220121
  Receipt Date: 20220121
  Transmission Date: 20220423
  Serious: No
  Sender: FDA-Public Use
  Company Number: 2022A033174

PATIENT
  Sex: Male

DRUGS (2)
  1. BRILINTA [Suspect]
     Active Substance: TICAGRELOR
     Dosage: DOSE UNKNOWN
     Route: 048
     Dates: end: 202108
  2. CARAFATE [Concomitant]
     Active Substance: SUCRALFATE
     Dosage: LIQUID 4 TIMES A DAY AND WAS ON A PPI
     Route: 065

REACTIONS (4)
  - Mouth haemorrhage [Unknown]
  - Haemoptysis [Unknown]
  - Gastritis [Unknown]
  - Dyspepsia [Unknown]
